FAERS Safety Report 9704671 (Version 2)
Quarter: 2013Q4

REPORT INFORMATION
  Report Type: Spontaneous
  Country: GB (occurrence: GB)
  Receive Date: 20131122
  Receipt Date: 20131122
  Transmission Date: 20140711
  Serious: Yes (Other)
  Sender: FDA-Public Use
  Company Number: GB-ALLERGAN-1209573US

PATIENT
  Age: 46 Year
  Sex: Female

DRUGS (3)
  1. BOTOX [Suspect]
     Indication: MIGRAINE
     Dosage: 155 UNITS, SINGLE
     Dates: start: 20120126, end: 20120126
  2. AMITRIPTYLINE [Concomitant]
     Indication: PRODUCT USED FOR UNKNOWN INDICATION
  3. SUMATRIPTAN [Concomitant]
     Indication: PRODUCT USED FOR UNKNOWN INDICATION

REACTIONS (3)
  - Joint dislocation [Recovered/Resolved]
  - Pain in jaw [Not Recovered/Not Resolved]
  - Mastication disorder [Unknown]
